FAERS Safety Report 9957245 (Version 1)
Quarter: 2014Q1

REPORT INFORMATION
  Report Type: Report from Study
  Country: US (occurrence: US)
  Receive Date: 20140304
  Receipt Date: 20140304
  Transmission Date: 20141002
  Serious: No
  Sender: FDA-Public Use
  Company Number: US-ABBVIE-13P-163-1096696-00

PATIENT
  Age: 50 Year
  Sex: Female

DRUGS (7)
  1. HUMIRA [Suspect]
     Indication: CROHN^S DISEASE
     Dosage: LOADING DOSE
     Dates: start: 20130506, end: 20130506
  2. HUMIRA [Suspect]
     Dates: start: 20130520
  3. TOPAMAX [Concomitant]
     Indication: MIGRAINE
  4. EFFEXOR [Concomitant]
     Indication: DEPRESSION
  5. EFFEXOR [Concomitant]
     Indication: ANXIETY
  6. ASACOL [Concomitant]
     Indication: CROHN^S DISEASE
  7. BAYER MIGRAINE (OTC) [Concomitant]
     Indication: PRODUCT USED FOR UNKNOWN INDICATION
     Dosage: AS NEEDED

REACTIONS (1)
  - Headache [Recovered/Resolved]
